FAERS Safety Report 19989184 (Version 1)
Quarter: 2021Q4

REPORT INFORMATION
  Report Type: Report from Study
  Country: None (occurrence: DE)
  Receive Date: 20211025
  Receipt Date: 20211025
  Transmission Date: 20220303
  Serious: Yes (Other)
  Sender: FDA-Public Use
  Company Number: DE-ABBVIE-21K-062-4132810-00

PATIENT
  Sex: Male
  Weight: 85 kg

DRUGS (1)
  1. HUMIRA [Suspect]
     Active Substance: ADALIMUMAB
     Indication: Crohn^s disease
     Route: 058
     Dates: start: 2015, end: 2019

REACTIONS (2)
  - Cardiac failure [Not Recovered/Not Resolved]
  - Cardiomegaly [Recovered/Resolved]
